FAERS Safety Report 9685333 (Version 7)
Quarter: 2014Q2

REPORT INFORMATION
  Report Type: Report from Study
  Country: DE (occurrence: DE)
  Receive Date: 20131113
  Receipt Date: 20140415
  Transmission Date: 20141212
  Serious: Yes (Hospitalization)
  Sender: FDA-Public Use
  Company Number: PHHY2013DE128362

PATIENT
  Sex: Female
  Weight: 77 kg

DRUGS (4)
  1. AFINITOR [Suspect]
     Indication: BREAST CANCER METASTATIC
     Dosage: 5 MG, QD
     Route: 048
     Dates: start: 20130929, end: 20131005
  2. AFINITOR [Suspect]
     Dosage: 10 MG, QD
     Route: 048
     Dates: start: 20131006, end: 20131108
  3. AFINITOR [Suspect]
     Dosage: 10 MG, QD
     Route: 048
     Dates: start: 20131114, end: 20131214
  4. EXEMESTANE [Concomitant]
     Indication: BREAST CANCER METASTATIC
     Dosage: 25 MG, QD
     Route: 048
     Dates: start: 20130929, end: 20140318

REACTIONS (7)
  - General physical health deterioration [Recovered/Resolved]
  - Bronchopneumonia [Recovered/Resolved]
  - Asthenia [Recovered/Resolved]
  - Pyrexia [Recovered/Resolved]
  - Anaemia [Recovered/Resolved]
  - Urosepsis [Recovered/Resolved]
  - Pleural effusion [Recovered/Resolved]
